FAERS Safety Report 10452584 (Version 1)
Quarter: 2014Q3

REPORT INFORMATION
  Report Type: Spontaneous
  Country: FR (occurrence: FR)
  Receive Date: 20140915
  Receipt Date: 20140915
  Transmission Date: 20150326
  Serious: Yes (Hospitalization)
  Sender: FDA-Public Use
  Company Number: FR-009507513-1409FRA004743

PATIENT
  Age: 27 Year
  Sex: Female

DRUGS (3)
  1. ELONVA [Suspect]
     Active Substance: CORIFOLLITROPIN ALFA
     Indication: OVULATION INDUCTION
     Dosage: 150 MICROGRAM, ONCE
     Route: 058
     Dates: start: 20140706, end: 20140706
  2. GONAL-F [Suspect]
     Active Substance: FOLLITROPIN
     Indication: OVULATION INDUCTION
     Dosage: 1 DF, QD
     Route: 058
     Dates: start: 20140713, end: 20140715
  3. GONADOTROPIN, CHORIONIC [Suspect]
     Active Substance: CHORIOGONADOTROPIN ALFA
     Indication: OVULATION INDUCTION
     Dosage: 5000 IU, ONCE
     Route: 058
     Dates: start: 20140716, end: 20140716

REACTIONS (4)
  - Ascites [None]
  - Anuria [Recovered/Resolved]
  - Pulmonary embolism [Recovered/Resolved]
  - Ovarian hyperstimulation syndrome [Recovered/Resolved]

NARRATIVE: CASE EVENT DATE: 20140721
